FAERS Safety Report 18860806 (Version 4)
Quarter: 2023Q1

REPORT INFORMATION
  Report Type: Report from Study
  Country: US (occurrence: US)
  Receive Date: 20210208
  Receipt Date: 20230320
  Transmission Date: 20230417
  Serious: Yes (Hospitalization, Other)
  Sender: FDA-Public Use
  Company Number: US-PFIZER INC-2021046126

PATIENT
  Age: 73 Year
  Sex: Female
  Weight: 46.4 kg

DRUGS (12)
  1. TOZINAMERAN [Suspect]
     Active Substance: TOZINAMERAN
     Indication: COVID-19 immunisation
     Dosage: DOSE 2, 30 UG SINGLE
     Route: 030
     Dates: start: 20201001, end: 20201001
  2. CAMPTOSAR [Suspect]
     Active Substance: IRINOTECAN HYDROCHLORIDE
     Indication: Adenocarcinoma pancreas
     Dosage: 180 MG, ONCE
     Route: 042
     Dates: start: 20210107, end: 20210107
  3. WELLCOVORIN [Suspect]
     Active Substance: LEUCOVORIN CALCIUM
     Indication: Adenocarcinoma pancreas
     Dosage: 400 MG, ONCE
     Route: 042
     Dates: start: 20210107, end: 20210107
  4. ADRUCIL [Suspect]
     Active Substance: FLUOROURACIL
     Indication: Adenocarcinoma pancreas
     Dosage: 3500 MG, ONCE
     Route: 042
     Dates: start: 20210107, end: 20210107
  5. ELOXATIN [Suspect]
     Active Substance: OXALIPLATIN
     Indication: Adenocarcinoma pancreas
     Dosage: 115 MG, ONCE
     Route: 042
     Dates: start: 20210107, end: 20210107
  6. SYNTHROID [Concomitant]
     Active Substance: LEVOTHYROXINE SODIUM
     Indication: Hypothyroidism
     Dosage: UNK
     Dates: start: 2014
  7. LIPITOR [Concomitant]
     Active Substance: ATORVASTATIN CALCIUM
     Indication: Dyslipidaemia
     Dosage: UNK
     Dates: start: 2018
  8. BENTYL [Concomitant]
     Active Substance: DICYCLOMINE HYDROCHLORIDE
     Indication: Irritable bowel syndrome
     Dosage: UNK
     Dates: start: 201911
  9. COLACE [Concomitant]
     Active Substance: DOCUSATE SODIUM
     Indication: Irritable bowel syndrome
     Dosage: UNK
     Dates: start: 2010
  10. PRILOSEC [Concomitant]
     Active Substance: OMEPRAZOLE MAGNESIUM
     Indication: Adenocarcinoma pancreas
     Dosage: UNK
     Dates: start: 20201127
  11. CREON [Concomitant]
     Active Substance: PANCRELIPASE AMYLASE\PANCRELIPASE LIPASE\PANCRELIPASE PROTEASE
     Indication: Adenocarcinoma pancreas
     Dosage: UNK
     Dates: start: 20201127
  12. NEULASTA [Concomitant]
     Active Substance: PEGFILGRASTIM
     Indication: Cytopenia
     Dosage: UNK
     Dates: start: 20210109, end: 20210109

REACTIONS (1)
  - Enterocolitis [Not Recovered/Not Resolved]

NARRATIVE: CASE EVENT DATE: 20210115
